FAERS Safety Report 15578941 (Version 12)
Quarter: 2019Q2

REPORT INFORMATION
  Report Type: Report from Study
  Country: SG (occurrence: SG)
  Receive Date: 20181102
  Receipt Date: 20190417
  Transmission Date: 20190711
  Serious: Yes (Hospitalization)
  Sender: FDA-Public Use
  Company Number: SG-ROCHE-2205844

PATIENT
  Age: 71 Year
  Sex: Male
  Weight: 63 kg

DRUGS (61)
  1. GLIPIZIDE. [Concomitant]
     Active Substance: GLIPIZIDE
     Indication: DIABETES MELLITUS
     Route: 065
     Dates: start: 1998
  2. GLIPIZIDE. [Concomitant]
     Active Substance: GLIPIZIDE
     Route: 065
     Dates: start: 20181110, end: 20181212
  3. FENTANYL. [Concomitant]
     Active Substance: FENTANYL
     Route: 065
     Dates: start: 20181105, end: 20181114
  4. TAZOCIN [Concomitant]
     Active Substance: PIPERACILLIN SODIUM\TAZOBACTAM SODIUM
     Route: 065
     Dates: start: 20190202, end: 20190204
  5. METOCLOPRAMIDE HCL [Concomitant]
     Active Substance: METOCLOPRAMIDE HYDROCHLORIDE
     Indication: NAUSEA
     Route: 065
     Dates: start: 20181110, end: 20181114
  6. ONDANSETRON [Concomitant]
     Active Substance: ONDANSETRON
     Indication: VOMITING
     Route: 065
     Dates: start: 20190117, end: 20190124
  7. PROCODIN [Concomitant]
     Active Substance: CODEINE PHOSPHATE\PROMETHAZINE HYDROCHLORIDE
     Indication: COUGH
     Route: 065
     Dates: start: 20181029, end: 20181030
  8. GLIPIZIDE. [Concomitant]
     Active Substance: GLIPIZIDE
     Route: 065
     Dates: start: 20190202, end: 20190204
  9. TRAMADOL. [Concomitant]
     Active Substance: TRAMADOL
     Route: 065
     Dates: start: 20181030, end: 20181030
  10. LOPERAMIDE [Concomitant]
     Active Substance: LOPERAMIDE
     Indication: DIARRHOEA
     Route: 065
     Dates: start: 20181025
  11. FENTANYL. [Concomitant]
     Active Substance: FENTANYL
     Indication: PAIN
     Route: 065
     Dates: start: 20181103, end: 20181103
  12. FENTANYL. [Concomitant]
     Active Substance: FENTANYL
     Route: 065
     Dates: start: 20181102, end: 20181103
  13. TAZOCIN [Concomitant]
     Active Substance: PIPERACILLIN SODIUM\TAZOBACTAM SODIUM
     Indication: ABDOMINAL INFECTION
     Route: 065
     Dates: start: 20181027, end: 20181029
  14. MOXIFLOXACIN. [Concomitant]
     Active Substance: MOXIFLOXACIN
     Indication: EYE INFECTION
     Route: 065
     Dates: start: 20181128, end: 20190225
  15. PREDNISOLONE ACETATE. [Concomitant]
     Active Substance: PREDNISOLONE ACETATE
     Route: 047
     Dates: start: 20181123, end: 20181126
  16. MORPHINE SULFATE. [Concomitant]
     Active Substance: MORPHINE SULFATE
     Route: 065
     Dates: start: 20190116, end: 20190225
  17. AMOXICILLIN. [Concomitant]
     Active Substance: AMOXICILLIN
     Route: 065
     Dates: start: 20190131
  18. CO-AMOXICLAV [Concomitant]
     Active Substance: AMOXICILLIN\CLAVULANATE POTASSIUM
     Route: 065
     Dates: start: 20190123, end: 20190130
  19. DEXTROSE. [Concomitant]
     Active Substance: DEXTROSE
     Route: 048
     Dates: start: 20181030, end: 20181030
  20. LACTULOSE. [Concomitant]
     Active Substance: LACTULOSE
     Route: 065
     Dates: start: 20190202, end: 20190327
  21. SPIRONOLACTONE. [Concomitant]
     Active Substance: SPIRONOLACTONE
     Route: 065
     Dates: start: 20181024, end: 20181116
  22. FENTANYL. [Concomitant]
     Active Substance: FENTANYL
     Route: 065
     Dates: start: 20181202, end: 20190112
  23. SODIUM PHOSPHATE [Concomitant]
     Active Substance: SODIUM PHOSPHATE
     Indication: HYPOPHOSPHATAEMIA
     Route: 065
     Dates: start: 20181101, end: 20181101
  24. CLOTRIMAZOLE. [Concomitant]
     Active Substance: CLOTRIMAZOLE
     Indication: FUNGAL INFECTION
     Route: 065
     Dates: start: 20181128, end: 20190112
  25. PREDNISOLONE ACETATE. [Concomitant]
     Active Substance: PREDNISOLONE ACETATE
     Indication: EYE INFECTION
     Route: 047
     Dates: start: 20190202, end: 20190225
  26. UREA. [Concomitant]
     Active Substance: UREA
     Indication: DRY SKIN
     Route: 065
     Dates: start: 20190103, end: 20190202
  27. OMEPRAZOLE. [Concomitant]
     Active Substance: OMEPRAZOLE
     Indication: GASTRITIS
     Route: 065
     Dates: start: 20180906, end: 20181006
  28. METFORMIN [Concomitant]
     Active Substance: METFORMIN HYDROCHLORIDE
     Indication: DIABETES MELLITUS
     Route: 065
     Dates: start: 1998
  29. MAGNESIUM SULFATE. [Concomitant]
     Active Substance: MAGNESIUM SULFATE
     Route: 065
     Dates: start: 20181031, end: 20181031
  30. SODIUM CHLORIDE. [Concomitant]
     Active Substance: SODIUM CHLORIDE
     Route: 065
     Dates: start: 20181027, end: 20181031
  31. MORPHINE SULFATE. [Concomitant]
     Active Substance: MORPHINE SULFATE
     Indication: PAIN
     Route: 065
     Dates: start: 20181212, end: 20190112
  32. SENNOSIDES. [Concomitant]
     Active Substance: SENNOSIDES
     Indication: CONSTIPATION
     Route: 065
     Dates: start: 20190202, end: 20190225
  33. TEARS NATURALE FREE [Concomitant]
     Active Substance: DEXTRAN 70\HYPROMELLOSE 2910 (4000 MPA.S)
     Indication: DRY EYE
     Route: 065
     Dates: start: 20190202, end: 20190225
  34. ATEZOLIZUMAB. [Suspect]
     Active Substance: ATEZOLIZUMAB
     Indication: HEPATOCELLULAR CARCINOMA
     Dosage: DATE OF MOST RECENT DOSE OF ATEZOLIZUMAB PRIOR TO THE ONSET OF FEVER, INFECTED PERISPLENIC COLLECTIO
     Route: 042
     Dates: start: 20181001
  35. LACTULOSE. [Concomitant]
     Active Substance: LACTULOSE
     Indication: CONSTIPATION
     Dosage: SYRUP
     Route: 065
     Dates: start: 20181024, end: 20181123
  36. TRAMADOL. [Concomitant]
     Active Substance: TRAMADOL
     Indication: PAIN
     Route: 065
     Dates: start: 20181024
  37. FENTANYL. [Concomitant]
     Active Substance: FENTANYL
     Route: 065
     Dates: start: 20190116, end: 20190313
  38. PREDNISOLONE ACETATE. [Concomitant]
     Active Substance: PREDNISOLONE ACETATE
     Indication: EYE IRRITATION
     Route: 047
     Dates: start: 20181128, end: 20190112
  39. LORAZEPAM. [Concomitant]
     Active Substance: LORAZEPAM
     Indication: INSOMNIA
     Route: 065
     Dates: start: 20190116, end: 20190130
  40. METOCLOPRAMIDE HCL [Concomitant]
     Active Substance: METOCLOPRAMIDE HYDROCHLORIDE
     Indication: VOMITING
     Route: 065
     Dates: start: 20190116, end: 20190124
  41. SIMVASTATIN. [Concomitant]
     Active Substance: SIMVASTATIN
     Indication: HYPERLIPIDAEMIA
     Route: 065
     Dates: start: 1998
  42. KETOPROFEN. [Concomitant]
     Active Substance: KETOPROFEN
     Indication: PAIN
     Route: 065
     Dates: start: 20181001
  43. ACTRAPID [Concomitant]
     Active Substance: INSULIN HUMAN
     Indication: DIABETES MELLITUS
     Route: 065
     Dates: start: 20181108, end: 20181108
  44. DEXTROSE/SODIUM CHLORIDE [Concomitant]
     Dosage: 5% DEXTROSE
     Route: 065
     Dates: start: 20181030, end: 20181031
  45. CO-AMOXICLAV [Concomitant]
     Active Substance: AMOXICILLIN\CLAVULANATE POTASSIUM
     Route: 065
     Dates: start: 20190131
  46. OXYMETAZOLINE HCL [Concomitant]
     Active Substance: OXYMETAZOLINE HYDROCHLORIDE
     Route: 065
     Dates: start: 20181106, end: 20181107
  47. BEVACIZUMAB. [Suspect]
     Active Substance: BEVACIZUMAB
     Indication: HEPATOCELLULAR CARCINOMA
     Dosage: DATE OF MOST RECENT DOSE OF BEVACIZUMAB (945 MG) PRIOR TO THE ONSET OF FEVER, INFECTED PERISPLENIC C
     Route: 042
     Dates: start: 20181001
  48. LACTULOSE. [Concomitant]
     Active Substance: LACTULOSE
     Route: 065
     Dates: start: 20181110, end: 20181227
  49. METOCLOPRAMIDE. [Concomitant]
     Active Substance: METOCLOPRAMIDE
     Indication: VOMITING
     Route: 065
     Dates: start: 20181024
  50. FENTANYL. [Concomitant]
     Active Substance: FENTANYL
     Route: 065
     Dates: start: 20181031, end: 20181102
  51. FENTANYL. [Concomitant]
     Active Substance: FENTANYL
     Route: 065
     Dates: start: 20181103, end: 20181105
  52. FENTANYL. [Concomitant]
     Active Substance: FENTANYL
     Route: 065
     Dates: start: 20181105, end: 20181113
  53. POTASSIUM DIHYDROGEN PHOSPHATE [Concomitant]
     Active Substance: POTASSIUM PHOSPHATE, MONOBASIC
     Route: 065
     Dates: start: 20181101, end: 20181101
  54. CHOLINE SALICYLATE [Concomitant]
     Active Substance: CHOLINE SALICYLATE
     Indication: STOMATITIS
     Route: 048
     Dates: start: 20181124, end: 20190112
  55. AMOXICILLIN. [Concomitant]
     Active Substance: AMOXICILLIN
     Route: 065
     Dates: start: 20190123, end: 20190130
  56. TETRACYCLINE HCL [Concomitant]
     Active Substance: TETRACYCLINE HYDROCHLORIDE
     Indication: INFECTION
     Route: 065
     Dates: start: 20190203, end: 20190313
  57. LOSARTAN. [Concomitant]
     Active Substance: LOSARTAN
     Indication: HYPERTENSION
     Route: 065
     Dates: start: 1998
  58. SENNA [Concomitant]
     Active Substance: SENNA LEAF\SENNOSIDES\SENNOSIDES A AND B
     Indication: CONSTIPATION
     Route: 065
     Dates: start: 20181024, end: 20181026
  59. FENTANYL. [Concomitant]
     Active Substance: FENTANYL
     Route: 065
     Dates: start: 20181031, end: 20181105
  60. DROSSA NOSE [Concomitant]
     Indication: EPISTAXIS
     Route: 065
     Dates: start: 20181106, end: 20190225
  61. PROCODIN [Concomitant]
     Active Substance: CODEINE PHOSPHATE\PROMETHAZINE HYDROCHLORIDE
     Route: 065
     Dates: start: 20181213, end: 20181220

REACTIONS (3)
  - Pyrexia [Recovered/Resolved]
  - Abdominal pain upper [Recovered/Resolved]
  - Burkholderia pseudomallei infection [Recovering/Resolving]

NARRATIVE: CASE EVENT DATE: 20181021
